FAERS Safety Report 9914316 (Version 1)
Quarter: 2014Q1

REPORT INFORMATION
  Report Type: Spontaneous
  Country: JP (occurrence: None)
  Receive Date: 20140218
  Receipt Date: 20140218
  Transmission Date: 20141002
  Serious: Yes (Other)
  Sender: FDA-Public Use
  Company Number: 7269344

PATIENT
  Sex: Male

DRUGS (1)
  1. LEVOTHYROXINE [Suspect]
     Indication: HYPOTHYROIDISM
     Dosage: PRODUCT TAKEN BY MOTHER

REACTIONS (8)
  - Foetal growth restriction [None]
  - Anti-thyroid antibody positive [None]
  - Hyperthyroidism [None]
  - Goitre [None]
  - Congenital hypothyroidism [None]
  - Caesarean section [None]
  - Failure to thrive [None]
  - Maternal drugs affecting foetus [None]
